FAERS Safety Report 10664129 (Version 1)
Quarter: 2014Q4

REPORT INFORMATION
  Report Type: Report from Study
  Country: US (occurrence: US)
  Receive Date: 20141219
  Receipt Date: 20141219
  Transmission Date: 20150529
  Serious: No
  Sender: FDA-Public Use
  Company Number: PHEH2014US024825

PATIENT
  Sex: Female

DRUGS (3)
  1. SPRYCEL [Suspect]
     Active Substance: DASATINIB
     Indication: CHRONIC MYELOID LEUKAEMIA
     Dosage: 50 MG, BID
     Route: 065
  2. TASIGNA [Suspect]
     Active Substance: NILOTINIB
     Indication: CHRONIC MYELOID LEUKAEMIA
     Dosage: UNK
     Route: 065
  3. TASIGNA [Suspect]
     Active Substance: NILOTINIB
     Dosage: RESUMED (DOSE UNSPECIFIED)
     Route: 065

REACTIONS (10)
  - Diarrhoea [Unknown]
  - Tremor [Unknown]
  - Alopecia [Unknown]
  - Asthenia [Unknown]
  - Fatigue [Unknown]
  - Pruritus [Unknown]
  - Nausea [Unknown]
  - Dry skin [Unknown]
  - Rash [Unknown]
  - Headache [Unknown]
